FAERS Safety Report 26040070 (Version 2)
Quarter: 2025Q4

REPORT INFORMATION
  Report Type: Spontaneous
  Country: EU (occurrence: EU)
  Receive Date: 20251113
  Receipt Date: 20251126
  Transmission Date: 20260117
  Serious: Yes (Other)
  Sender: AUROBINDO
  Company Number: EU-ADIENNEP-2025AD000758

PATIENT
  Sex: Female

DRUGS (7)
  1. METHOTREXATE [Suspect]
     Active Substance: METHOTREXATE
     Indication: Chemotherapy
     Dosage: 8000 MILLIGRAM/SQ. METER, TOTAL
     Route: 065
  2. CARBOPLATIN [Suspect]
     Active Substance: CARBOPLATIN
     Indication: Chemotherapy
     Dosage: 1800 MILLIGRAM/SQ. METER, TOTAL
     Route: 065
  3. CYCLOPHOSPHAMIDE [Suspect]
     Active Substance: CYCLOPHOSPHAMIDE
     Indication: Chemotherapy
     Dosage: 4000 MILLIGRAM/SQ. METER, TOTAL
     Route: 065
  4. THIOTEPA [Suspect]
     Active Substance: THIOTEPA
     Indication: Autologous haematopoietic stem cell transplant
     Dosage: 16.5 MILLIGRAM/SQ. METER, TOTAL
     Route: 065
  5. VINCRISTINE [Suspect]
     Active Substance: VINCRISTINE
     Indication: Chemotherapy
     Dosage: 4.5 MILLIGRAM/SQ. METER, TOTAL
     Route: 065
  6. ETOPOSIDE [Suspect]
     Active Substance: ETOPOSIDE
     Indication: Chemotherapy
     Dosage: 2400 MILLIGRAM/SQ. METER, TOTAL
     Route: 065
  7. TEMOZOLOMIDE [Suspect]
     Active Substance: TEMOZOLOMIDE
     Indication: Chemotherapy
     Dosage: 4200 MILLIGRAM/SQ. METER, TOTAL
     Route: 065

REACTIONS (1)
  - Renal cell carcinoma stage I [Unknown]
